FAERS Safety Report 8838140 (Version 2)
Quarter: 2015Q2

REPORT INFORMATION
  Report Type: Report from Study
  Country: US (occurrence: US)
  Receive Date: 20121012
  Receipt Date: 20150402
  Transmission Date: 20150821
  Serious: Yes (Hospitalization)
  Sender: FDA-Public Use
  Company Number: US-ROCHE-1139459

PATIENT
  Sex: Female
  Weight: 35 kg

DRUGS (2)
  1. PROTROPIN [Suspect]
     Active Substance: SOMATREM
     Indication: HYPOPITUITARISM
  2. PROTROPIN [Suspect]
     Active Substance: SOMATREM
     Indication: HYPOTHALAMO-PITUITARY DISORDER
     Dosage: DAILY
     Route: 058

REACTIONS (1)
  - Cerebrovascular accident [Unknown]
